FAERS Safety Report 9305040 (Version 2)
Quarter: 2013Q2

REPORT INFORMATION
  Report Type: Spontaneous
  Country: US (occurrence: None)
  Receive Date: 20130521
  Receipt Date: 20130529
  Transmission Date: 20140414
  Serious: Yes (Hospitalization, Other)
  Sender: FDA-Public Use
  Company Number: JPI-P-031746

PATIENT
  Age: 76 Year
  Sex: Female

DRUGS (4)
  1. XYREM [Suspect]
     Indication: CATAPLEXY
     Dosage: 4.5 GM (2.25 GM,2 IN 1 D)
     Route: 048
     Dates: start: 20030804
  2. BLOOD PRESSURE PILLS [Concomitant]
  3. MULTIVITAMIN WITH IRON [Concomitant]
  4. ACID REFLUX MEDICATION [Concomitant]

REACTIONS (4)
  - Fall [None]
  - Groin pain [None]
  - Hip fracture [None]
  - Hip arthroplasty [None]
